FAERS Safety Report 7225280-9 (Version None)
Quarter: 2011Q1

REPORT INFORMATION
  Report Type: 
  Country: None (occurrence: None)
  Receive Date: 20110113
  Receipt Date: 20110111
  Transmission Date: 20110831
  Serious: Yes (Death)
  Sender: FDA-Public Use
  Company Number: D0068788A

PATIENT
  Sex: Male

DRUGS (4)
  1. LIRAGLUTIDE [Suspect]
     Route: 065
     Dates: start: 20090101
  2. GLIMEPIRIDE [Suspect]
     Route: 065
  3. AVANDIA [Suspect]
     Indication: TYPE 1 DIABETES MELLITUS
     Route: 065
     Dates: end: 20080101
  4. INSULIN [Suspect]
     Route: 065
     Dates: start: 20080101, end: 20090101

REACTIONS (5)
  - OSTEOMYELITIS [None]
  - SEPSIS [None]
  - DEATH [None]
  - TOE AMPUTATION [None]
  - GLYCOSYLATED HAEMOGLOBIN INCREASED [None]
